FAERS Safety Report 4745310-3 (Version None)
Quarter: 2005Q3

REPORT INFORMATION
  Report Type: 
  Country: None (occurrence: None)
  Receive Date: 20050815
  Receipt Date: 20050621
  Transmission Date: 20060218
  Serious: Yes (Hospitalization)
  Sender: FDA-Public Use
  Company Number: PHBS2005JP08978

PATIENT
  Age: 30 Year
  Sex: Female

DRUGS (5)
  1. NEORAL [Suspect]
     Indication: SYSTEMIC LUPUS ERYTHEMATOSUS
     Dosage: 150 MG/D
     Route: 048
     Dates: start: 20040413, end: 20050601
  2. NEORAL [Suspect]
     Dosage: 50 MG/D
     Route: 048
     Dates: start: 20050601
  3. MEDROL [Suspect]
     Dosage: 10 MG/D
     Route: 048
     Dates: start: 20040401
  4. PERSANTIN [Suspect]
     Dosage: 150 MG/D
     Route: 048
     Dates: start: 20020101
  5. GASTER [Suspect]
     Dosage: 20 MG/D
     Route: 048
     Dates: start: 20020101

REACTIONS (2)
  - ABORTION SPONTANEOUS [None]
  - DRUG EXPOSURE DURING PREGNANCY [None]
